FAERS Safety Report 9850577 (Version 2)
Quarter: 2014Q1

REPORT INFORMATION
  Report Type: Spontaneous
  Country: KR (occurrence: KR)
  Receive Date: 20140128
  Receipt Date: 20140212
  Transmission Date: 20141002
  Serious: Yes (Death)
  Sender: FDA-Public Use
  Company Number: KR-OTSUKA-JP-2014-10328

PATIENT
  Age: 73 Year
  Sex: Male

DRUGS (1)
  1. SAMSCA [Suspect]
     Indication: HYPONATRAEMIA
     Dosage: UNK
     Dates: start: 20140109, end: 20140116

REACTIONS (1)
  - Cardiac failure [Fatal]
